FAERS Safety Report 18324002 (Version 1)
Quarter: 2020Q3

REPORT INFORMATION
  Report Type: Spontaneous
  Country: US (occurrence: US)
  Receive Date: 20200928
  Receipt Date: 20200928
  Transmission Date: 20201103
  Serious: Yes (Hospitalization)
  Sender: FDA-Public Use
  Company Number: US-VIFOR (INTERNATIONAL) INC.-VIT-2020-09698

PATIENT
  Age: 80 Year
  Sex: Male

DRUGS (6)
  1. LEVOTHYROXINE. [Concomitant]
     Active Substance: LEVOTHYROXINE
  2. HYDROCHLOROT [Concomitant]
     Active Substance: HYDROCHLOROTHIAZIDE
  3. TEMAZEPAM. [Concomitant]
     Active Substance: TEMAZEPAM
  4. FAMOTIDINE. [Concomitant]
     Active Substance: FAMOTIDINE
  5. SODIUM BICAR [Concomitant]
  6. VELTASSA [Suspect]
     Active Substance: PATIROMER
     Indication: HYPERKALAEMIA
     Dates: start: 20170328

REACTIONS (1)
  - Appendicitis perforated [Not Recovered/Not Resolved]

NARRATIVE: CASE EVENT DATE: 201910
